FAERS Safety Report 23811525 (Version 2)
Quarter: 2024Q2

REPORT INFORMATION
  Report Type: Spontaneous
  Country: US (occurrence: US)
  Receive Date: 20240503
  Receipt Date: 20240513
  Transmission Date: 20240716
  Serious: Yes (Other)
  Sender: FDA-Public Use
  Company Number: US-NOVOPROD-1213382

PATIENT
  Sex: Female

DRUGS (1)
  1. OZEMPIC [Suspect]
     Active Substance: SEMAGLUTIDE
     Indication: Product used for unknown indication
     Dosage: 2 MG, QW
     Route: 058
     Dates: end: 20240228

REACTIONS (4)
  - Neoplasm malignant [Recovered/Resolved]
  - Gastrointestinal disorder [Unknown]
  - Pancreatic disorder [Unknown]
  - Weight decreased [Unknown]
